FAERS Safety Report 8394101-3 (Version None)
Quarter: 2012Q2

REPORT INFORMATION
  Report Type: 
  Country: None (occurrence: None)
  Receive Date: 20120530
  Receipt Date: 20120518
  Transmission Date: 20120825
  Serious: Yes (Hospitalization)
  Sender: FDA-Public Use
  Company Number: US-JNJFOC-20120410345

PATIENT
  Sex: Female

DRUGS (9)
  1. PROZAC [Concomitant]
     Indication: PRODUCT USED FOR UNKNOWN INDICATION
     Route: 048
  2. SYNTHROID [Concomitant]
     Indication: PRODUCT USED FOR UNKNOWN INDICATION
     Route: 048
  3. ZYRTEC [Concomitant]
     Indication: PRODUCT USED FOR UNKNOWN INDICATION
     Route: 048
  4. BYSTOLIC [Concomitant]
     Indication: PRODUCT USED FOR UNKNOWN INDICATION
     Route: 048
  5. CIPROFLOXACIN HCL [Concomitant]
     Indication: URINARY TRACT INFECTION
     Route: 048
  6. NORCO [Concomitant]
     Dosage: 5/325; EVERY 6 HOURS
     Route: 048
  7. FOSAMAX [Concomitant]
     Indication: PRODUCT USED FOR UNKNOWN INDICATION
     Route: 048
  8. STELARA [Suspect]
     Indication: PSORIASIS
     Route: 058
  9. WELLBUTRIN [Concomitant]
     Indication: PRODUCT USED FOR UNKNOWN INDICATION
     Route: 048

REACTIONS (4)
  - DIVERTICULUM INTESTINAL [None]
  - HAEMORRHAGIC ANAEMIA [None]
  - GASTROINTESTINAL HAEMORRHAGE [None]
  - COLONIC POLYP [None]
